FAERS Safety Report 20226298 (Version 1)
Quarter: 2021Q4

REPORT INFORMATION
  Report Type: Spontaneous
  Country: TR (occurrence: TR)
  Receive Date: 20211224
  Receipt Date: 20211224
  Transmission Date: 20220303
  Serious: Yes (Hospitalization, Other)
  Sender: FDA-Public Use
  Company Number: TR-Apnar-000117

PATIENT
  Age: 36 Year
  Sex: Male

DRUGS (1)
  1. BUPROPION HYDROCHLORIDE [Suspect]
     Active Substance: BUPROPION HYDROCHLORIDE
     Dosage: BUPROPION XL ORALLY MORE THAN RECOMMENDED (450-750 MG/D), DOSES UP TO 750-1500 MG AT A TIME
     Route: 048

REACTIONS (15)
  - Substance use disorder [Unknown]
  - Intentional product misuse [Unknown]
  - Irritability [Unknown]
  - Psychomotor hyperactivity [Unknown]
  - Anxiety [Unknown]
  - Panic attack [Unknown]
  - Hyperhidrosis [Unknown]
  - Flushing [Unknown]
  - Sinus tachycardia [Recovered/Resolved]
  - Palpitations [Unknown]
  - Hypoaesthesia [Unknown]
  - Depersonalisation/derealisation disorder [Unknown]
  - Tremor [Unknown]
  - Insomnia [Unknown]
  - Wrong technique in product usage process [Unknown]
